FAERS Safety Report 11072506 (Version 1)
Quarter: 2015Q2

REPORT INFORMATION
  Report Type: Report from Study
  Country: CA (occurrence: CA)
  Receive Date: 20150428
  Receipt Date: 20150428
  Transmission Date: 20150821
  Serious: Yes (Death, Hospitalization, Other)
  Sender: FDA-Public Use
  Company Number: CA-BAYER-2015-153938

PATIENT
  Age: 65 Year
  Sex: Female
  Weight: 52.2 kg

DRUGS (10)
  1. NEUPOGEN [Concomitant]
     Active Substance: FILGRASTIM
  2. VELCADE [Suspect]
     Active Substance: BORTEZOMIB
     Dosage: 13 MG/M2, UNK
     Route: 042
  3. MULTIVITAMINS [Suspect]
     Active Substance: VITAMINS
     Dosage: 1 DF, QD
     Route: 048
  4. REVLIMID [Concomitant]
     Active Substance: LENALIDOMIDE
  5. ASPIRIN. [Suspect]
     Active Substance: ASPIRIN
     Dosage: 81 MG, QD
     Route: 048
  6. DEXAMETHASONE. [Suspect]
     Active Substance: DEXAMETHASONE
     Dosage: 40 MG, Q3MON
     Route: 065
  7. VALACICLOVIR [Concomitant]
     Active Substance: VALACYCLOVIR HYDROCHLORIDE
  8. DEXAMETHASONE. [Suspect]
     Active Substance: DEXAMETHASONE
     Dosage: 40 MG, UNK
     Route: 048
  9. VELCADE [Suspect]
     Active Substance: BORTEZOMIB
     Dosage: 2 MG, UNK
     Route: 065
  10. FRAGMIN [Concomitant]
     Active Substance: DALTEPARIN SODIUM

REACTIONS (3)
  - Renal impairment [Fatal]
  - Gastroenteritis viral [Fatal]
  - Septic shock [Fatal]
